FAERS Safety Report 6971727-2 (Version None)
Quarter: 2010Q3

REPORT INFORMATION
  Report Type: 
  Country: None (occurrence: None)
  Receive Date: 20100903
  Receipt Date: 20100820
  Transmission Date: 20110219
  Serious: Yes (Hospitalization, Other)
  Sender: FDA-Public Use
  Company Number: 2010080058

PATIENT
  Age: 80 Year
  Sex: Female

DRUGS (8)
  1. TORSEMIDE [Suspect]
     Dosage: 200 MG (200 MG, 1 IN 1 D), ORAL
     Route: 048
     Dates: start: 20100201, end: 20100401
  2. GELONIDA (PARACETAMOL, CODEINE PHOSPHATE) [Suspect]
     Indication: BACK PAIN
     Dosage: 1 TABLET (1 TABLET, 1 IN 1 D), ORAL
     Route: 048
     Dates: start: 20090101, end: 20100601
  3. FLUNITRAZEPAM (FLUNITRAZEPAM) [Suspect]
     Indication: SLEEP DISORDER
     Dosage: 2 MG (1 MG, TAKEN IRREGULARLY), ORAL
     Route: 048
     Dates: start: 20090201
  4. METOPROLOL SUCCINATE [Suspect]
     Indication: HYPERTENSION
     Dosage: 50 MG (50 MG, 1 IN 1 D), ORAL
     Route: 048
     Dates: start: 20090301
  5. LEVOTHYROXINE SODIUM [Concomitant]
  6. MOLSIDOMINE (MOLSIDOMINE) [Concomitant]
  7. SIMVASTATIN [Concomitant]
  8. BEZAFIBRATE (BEZAFIBRATE) [Concomitant]

REACTIONS (6)
  - COORDINATION ABNORMAL [None]
  - DRUG ABUSE [None]
  - DRUG DEPENDENCE [None]
  - HYPERTENSION [None]
  - HYPOTENSION [None]
  - SLEEP DISORDER [None]
